FAERS Safety Report 15668785 (Version 1)
Quarter: 2018Q4

REPORT INFORMATION
  Report Type: Spontaneous
  Country: TR (occurrence: TR)
  Receive Date: 20181129
  Receipt Date: 20181129
  Transmission Date: 20190205
  Serious: Yes (Other)
  Sender: FDA-Public Use
  Company Number: TR-ALK-ABELLO A/S-2018AA004211

PATIENT

DRUGS (3)
  1. GRAZAX [Suspect]
     Active Substance: PHLEUM PRATENSE POLLEN
     Indication: EOSINOPHILIC OESOPHAGITIS
  2. BUDESONIDE. [Concomitant]
     Active Substance: BUDESONIDE
  3. ALUTARD SQ 225 [Suspect]
     Active Substance: ALLERGENIC EXTRACTS
     Indication: HYPERSENSITIVITY

REACTIONS (4)
  - Gastric haemorrhage [Unknown]
  - Product use in unapproved indication [Unknown]
  - Off label use [Unknown]
  - Drug ineffective [Unknown]
